FAERS Safety Report 15131182 (Version 1)
Quarter: 2018Q3

REPORT INFORMATION
  Report Type: Spontaneous
  Country: US (occurrence: US)
  Receive Date: 20180711
  Receipt Date: 20180711
  Transmission Date: 20181010
  Serious: Yes (Other)
  Sender: FDA-Public Use
  Company Number: US-PFIZER INC-2018276083

PATIENT
  Sex: Female

DRUGS (4)
  1. OMNITROPE [Suspect]
     Active Substance: SOMATROPIN
     Dosage: 0.1 MG, UNK
  2. HYDROCODONE [Suspect]
     Active Substance: HYDROCODONE
     Dosage: 0.5 DF, 1X/DAY
  3. XANAX [Suspect]
     Active Substance: ALPRAZOLAM
     Dosage: 0.5 DF, 1X/DAY
  4. OMNITROPE [Suspect]
     Active Substance: SOMATROPIN
     Dosage: 0.2 MG, UNK

REACTIONS (5)
  - Eye disorder [Unknown]
  - Hypersomnia [Unknown]
  - Eye oedema [Unknown]
  - Cushing^s syndrome [Unknown]
  - Nasal disorder [Unknown]
